FAERS Safety Report 23284253 (Version 1)
Quarter: 2023Q4

REPORT INFORMATION
  Report Type: Spontaneous
  Country: ES (occurrence: ES)
  Receive Date: 20231211
  Receipt Date: 20231211
  Transmission Date: 20240110
  Serious: Yes (Other)
  Sender: FDA-Public Use
  Company Number: ES-PFIZER INC-PV202300189123

PATIENT
  Age: 72 Year
  Sex: Female

DRUGS (3)
  1. ANASTROZOLE [Suspect]
     Active Substance: ANASTROZOLE
     Indication: Invasive ductal breast carcinoma
     Dosage: UNK
     Route: 065
  2. IBRANCE [Suspect]
     Active Substance: PALBOCICLIB
     Indication: Invasive ductal breast carcinoma
     Dosage: 125 MILLIGRAM
     Route: 065
     Dates: start: 201905, end: 201906
  3. IBRANCE [Suspect]
     Active Substance: PALBOCICLIB
     Dosage: 100 MILLIGRAM
     Route: 065
     Dates: start: 201907, end: 202311

REACTIONS (3)
  - Neutropenia [Unknown]
  - Stomatitis [Unknown]
  - Dysgeusia [Unknown]
